FAERS Safety Report 10784712 (Version 3)
Quarter: 2015Q1

REPORT INFORMATION
  Report Type: Report from Study
  Country: FR (occurrence: None)
  Receive Date: 20150209
  Receipt Date: 20150306
  Transmission Date: 20150721
  Serious: Yes (Other)
  Sender: FDA-Public Use
  Company Number: FR2015GSK015097

PATIENT
  Age: 39 Year
  Sex: Female
  Weight: 100 kg

DRUGS (8)
  1. COLECALCIFEROL [Concomitant]
     Active Substance: CHOLECALCIFEROL
  2. ABACAVIR SULFATE + LAMIVUDINE [Suspect]
     Active Substance: ABACAVIR SULFATE\LAMIVUDINE
  3. FLUOXETINE [Concomitant]
     Active Substance: FLUOXETINE\FLUOXETINE HYDROCHLORIDE
  4. ATAZANAVIR (ATAZANAVIR) [Suspect]
     Active Substance: ATAZANAVIR
  5. EVIPLERA [Suspect]
     Active Substance: EMTRICITABINE\RILPIVIRINE\TENOFOVIR DISOPROXIL FUMARATE
     Indication: HIV INFECTION
     Route: 048
     Dates: start: 20130104, end: 20140612
  6. COSOPT (DORZOLAMIDE HYDROCHLORIDE + TIMOLOL MALEATE) [Concomitant]
  7. URBANYL (CLOBAZAM) [Concomitant]
  8. RITONAVIR (RITONAVIR) [Suspect]
     Active Substance: RITONAVIR

REACTIONS (3)
  - Exposure during pregnancy [None]
  - Pregnancy [None]
  - Abortion spontaneous [None]

NARRATIVE: CASE EVENT DATE: 201406
